FAERS Safety Report 20417480 (Version 3)
Quarter: 2022Q1

REPORT INFORMATION
  Report Type: Report from Study
  Country: CO (occurrence: CO)
  Receive Date: 20220202
  Receipt Date: 20220224
  Transmission Date: 20220423
  Serious: Yes (Death, Hospitalization)
  Sender: FDA-Public Use
  Company Number: CO-002147023-NVSC2021CO301263

PATIENT

DRUGS (1)
  1. RUXOLITINIB [Suspect]
     Active Substance: RUXOLITINIB
     Indication: Polycythaemia vera
     Dosage: 15 MG, Q12H
     Route: 048

REACTIONS (6)
  - Condition aggravated [Unknown]
  - Product availability issue [Unknown]
  - Death [Fatal]
  - Full blood count abnormal [Unknown]
  - Malaise [Unknown]
  - Platelet count increased [Unknown]
